FAERS Safety Report 24411924 (Version 1)
Quarter: 2024Q4

REPORT INFORMATION
  Report Type: Spontaneous
  Country: ES (occurrence: ES)
  Receive Date: 20241008
  Receipt Date: 20241008
  Transmission Date: 20250115
  Serious: Yes (Hospitalization)
  Sender: FRESENIUS KABI
  Company Number: None

PATIENT
  Age: 64 Year
  Sex: Male

DRUGS (1)
  1. PACLITAXEL [Suspect]
     Active Substance: PACLITAXEL
     Indication: Squamous cell carcinoma of lung
     Dosage: 350 MG EVERY 21 DAYS INTRAVENOUSLY. THE RAM OCCURS IN THE SECOND CYCLE WHEN 20 CC OF THE TAXANE HAD
     Route: 042
     Dates: start: 20231122, end: 20231122

REACTIONS (3)
  - Bronchospasm [Recovered/Resolved]
  - Cytokine storm [Recovered/Resolved]
  - Erythema [Recovered/Resolved]

NARRATIVE: CASE EVENT DATE: 20231122
